FAERS Safety Report 16949667 (Version 2)
Quarter: 2019Q4

REPORT INFORMATION
  Report Type: Spontaneous
  Country: US (occurrence: US)
  Receive Date: 20191023
  Receipt Date: 20191204
  Transmission Date: 20200122
  Serious: Yes (Other)
  Sender: FDA-Public Use
  Company Number: US-ASTRAZENECA-2019SF48703

PATIENT
  Sex: Male
  Weight: 80.7 kg

DRUGS (2)
  1. SYMBICORT [Suspect]
     Active Substance: BUDESONIDE\FORMOTEROL FUMARATE DIHYDRATE
     Indication: ASTHMA
     Dosage: 80/4.5 MCG, UNKNOWN FREQUENCY UNKNOWN
     Route: 055
  2. ALLERGY PILLS [Concomitant]
     Active Substance: UNSPECIFIED INGREDIENT

REACTIONS (5)
  - Intentional product misuse [Unknown]
  - Product use in unapproved indication [Unknown]
  - Device issue [Unknown]
  - Asthma [Unknown]
  - Off label use [Unknown]
